FAERS Safety Report 18475441 (Version 1)
Quarter: 2020Q4

REPORT INFORMATION
  Report Type: Spontaneous
  Country: US (occurrence: US)
  Receive Date: 20201106
  Receipt Date: 20201106
  Transmission Date: 20210114
  Serious: Yes (Other)
  Sender: FDA-Public Use
  Company Number: US-PURDUE-USA-2020-0174699

PATIENT
  Sex: Male

DRUGS (22)
  1. BUPRENORPHINE TRANSDERMAL PATCH (SIMILAR TO NDA 21-306) [Suspect]
     Active Substance: BUPRENORPHINE
     Indication: MUSCLE SPASMS
  2. NORCO [Suspect]
     Active Substance: ACETAMINOPHEN\HYDROCODONE BITARTRATE
     Indication: MUSCLE SPASMS
  3. OXYCODONE HCL CR TABLETS (SIMILAR TO NDA 22-272) [Suspect]
     Active Substance: OXYCODONE HYDROCHLORIDE
     Indication: SPINAL PAIN
     Dosage: UNK
     Route: 048
  4. BUTRANS [Suspect]
     Active Substance: BUPRENORPHINE
     Indication: SPINAL PAIN
     Dosage: UNK
     Route: 062
  5. BUPRENORPHINE TRANSDERMAL PATCH (SIMILAR TO NDA 21-306) [Suspect]
     Active Substance: BUPRENORPHINE
     Indication: SPINAL PAIN
     Dosage: UNK
     Route: 062
  6. HYDROCODONE BITARTRATE AND ACETAMINOPHEN [Suspect]
     Active Substance: ACETAMINOPHEN\HYDROCODONE BITARTRATE
     Indication: MUSCLE SPASMS
  7. VICODIN [Suspect]
     Active Substance: ACETAMINOPHEN\HYDROCODONE BITARTRATE
     Indication: SPINAL PAIN
     Dosage: UNK
     Route: 065
     Dates: start: 1998, end: 2017
  8. TRAMADOL. [Suspect]
     Active Substance: TRAMADOL
     Indication: MUSCLE SPASMS
  9. FENTANYL. [Suspect]
     Active Substance: FENTANYL
     Indication: MUSCLE SPASMS
  10. SOMA [Suspect]
     Active Substance: CARISOPRODOL
     Indication: SPINAL PAIN
     Dosage: UNK
     Route: 048
     Dates: start: 1998, end: 2017
  11. VICODIN [Suspect]
     Active Substance: ACETAMINOPHEN\HYDROCODONE BITARTRATE
     Indication: MUSCLE SPASMS
  12. NORCO [Suspect]
     Active Substance: ACETAMINOPHEN\HYDROCODONE BITARTRATE
     Indication: SPINAL PAIN
     Dosage: UNK
     Route: 065
     Dates: start: 1998, end: 2017
  13. HYDROCODONE BITARTRATE AND ACETAMINOPHEN [Suspect]
     Active Substance: ACETAMINOPHEN\HYDROCODONE BITARTRATE
     Indication: SPINAL PAIN
     Dosage: UNK
     Route: 048
     Dates: start: 1998, end: 2017
  14. TRAMADOL. [Suspect]
     Active Substance: TRAMADOL
     Indication: SPINAL PAIN
     Dosage: UNK
     Route: 065
  15. FENTANYL. [Suspect]
     Active Substance: FENTANYL
     Indication: SPINAL PAIN
     Dosage: UNK PATCH, UNK
     Route: 065
     Dates: start: 1998, end: 2017
  16. OXYCONTIN [Suspect]
     Active Substance: OXYCODONE HYDROCHLORIDE
     Indication: SPINAL PAIN
     Dosage: UNK
     Route: 048
     Dates: start: 1998, end: 2017
  17. XANAX [Suspect]
     Active Substance: ALPRAZOLAM
     Indication: SPINAL PAIN
     Dosage: UNK
     Route: 048
     Dates: start: 1998, end: 2017
  18. SOMA [Suspect]
     Active Substance: CARISOPRODOL
     Indication: MUSCLE SPASMS
  19. OXYCONTIN [Suspect]
     Active Substance: OXYCODONE HYDROCHLORIDE
     Indication: MUSCLE SPASMS
  20. BUTRANS [Suspect]
     Active Substance: BUPRENORPHINE
     Indication: MUSCLE SPASMS
  21. OXYCODONE HCL CR TABLETS (SIMILAR TO NDA 22-272) [Suspect]
     Active Substance: OXYCODONE HYDROCHLORIDE
     Indication: MUSCLE SPASMS
  22. XANAX [Suspect]
     Active Substance: ALPRAZOLAM
     Indication: MUSCLE SPASMS

REACTIONS (10)
  - Emotional distress [Unknown]
  - Major depression [Unknown]
  - Psychotic disorder [Unknown]
  - Mental impairment [Unknown]
  - Irritability [Unknown]
  - Mood swings [Unknown]
  - Drug abuse [Unknown]
  - Drug dependence [Unknown]
  - Hallucination [Unknown]
  - Impaired driving ability [Unknown]
